FAERS Safety Report 25191930 (Version 1)
Quarter: 2025Q2

REPORT INFORMATION
  Report Type: Spontaneous
  Country: US (occurrence: US)
  Receive Date: 20250414
  Receipt Date: 20250414
  Transmission Date: 20250717
  Serious: Yes (Hospitalization)
  Sender: AMGEN
  Company Number: US-AMGEN-USASP2025066824

PATIENT
  Age: 74 Year
  Sex: Female

DRUGS (1)
  1. BEVACIZUMAB [Suspect]
     Active Substance: BEVACIZUMAB
     Indication: Rectal adenocarcinoma
     Route: 065

REACTIONS (4)
  - Cardiomyopathy [Recovering/Resolving]
  - Acute kidney injury [Recovered/Resolved]
  - Metabolic encephalopathy [Recovering/Resolving]
  - Hypoxia [Unknown]
